FAERS Safety Report 13526227 (Version 1)
Quarter: 2017Q2

REPORT INFORMATION
  Report Type: Other
  Country: TR (occurrence: TR)
  Receive Date: 20170509
  Receipt Date: 20170509
  Transmission Date: 20170830
  Serious: Yes (Death)
  Sender: FDA-Public Use
  Company Number: TR-ORCHID HEALTHCARE-2020431

PATIENT
  Age: 18 Year
  Sex: Female
  Weight: 56 kg

DRUGS (1)
  1. AMLODIPINE BESYLATE. [Suspect]
     Active Substance: AMLODIPINE BESYLATE
     Route: 065

REACTIONS (13)
  - Lactic acidosis [Unknown]
  - Hypoxia [Unknown]
  - Metabolic acidosis [Unknown]
  - Loss of consciousness [Unknown]
  - Intentional overdose [Fatal]
  - Sinus tachycardia [Unknown]
  - Pulmonary oedema [Unknown]
  - Hypotension [Unknown]
  - Sinus bradycardia [Unknown]
  - Central venous pressure decreased [Unknown]
  - Completed suicide [Fatal]
  - Cardiac arrest [Fatal]
  - Troponin increased [Unknown]
